FAERS Safety Report 25529124 (Version 2)
Quarter: 2025Q3

REPORT INFORMATION
  Report Type: Report from Study
  Country: CA (occurrence: CA)
  Receive Date: 20250708
  Receipt Date: 20250715
  Transmission Date: 20251021
  Serious: Yes (Hospitalization)
  Sender: SAMSUNG BIOEPIS
  Company Number: CA-SAMSUNG BIOEPIS-SB-2025-23383

PATIENT
  Age: 67 Year
  Sex: Male

DRUGS (1)
  1. RENFLEXIS [Suspect]
     Active Substance: INFLIXIMAB-ABDA
     Indication: Autoimmune colitis
     Route: 042
     Dates: start: 20240604

REACTIONS (2)
  - Pancreatitis [Not Recovered/Not Resolved]
  - Off label use [Unknown]
